FAERS Safety Report 4886707-0 (Version None)
Quarter: 2006Q1

REPORT INFORMATION
  Report Type: 
  Country: None (occurrence: None)
  Receive Date: 20060120
  Receipt Date: 20051223
  Transmission Date: 20060701
  Serious: Yes (Other)
  Sender: FDA-Public Use
  Company Number: PHBS2005ES18999

PATIENT
  Age: 69 Year
  Sex: Female

DRUGS (5)
  1. ZOMETA [Suspect]
     Indication: MULTIPLE MYELOMA
     Dosage: UNK, UNK
     Route: 065
     Dates: start: 20030901, end: 20051201
  2. INTERFERON ALFA [Concomitant]
  3. PREDNISONE [Concomitant]
  4. CALCIUM GLUCONATE [Concomitant]
  5. PARACETAMOL [Concomitant]

REACTIONS (1)
  - OSTEONECROSIS [None]
